FAERS Safety Report 9558573 (Version 1)
Quarter: 2013Q3

REPORT INFORMATION
  Report Type: Spontaneous
  Country: US (occurrence: US)
  Receive Date: 20130926
  Receipt Date: 20130926
  Transmission Date: 20140515
  Serious: Yes (Congenital Anomaly, Other)
  Sender: FDA-Public Use
  Company Number: US-ABBVIE-13P-163-1149258-00

PATIENT
  Sex: Male

DRUGS (1)
  1. DEPAKOTE [Suspect]
     Indication: MATERNAL EXPOSURE TIMING UNSPECIFIED
     Route: 064

REACTIONS (24)
  - Pain [Unknown]
  - Spina bifida [Unknown]
  - Hypospadias [Unknown]
  - Hydrocephalus [Unknown]
  - Ataxia [Unknown]
  - Arnold-Chiari malformation [Unknown]
  - Developmental hip dysplasia [Unknown]
  - Congenital eye disorder [Unknown]
  - Neurogenic bladder [Unknown]
  - Gastrointestinal malformation [Unknown]
  - Developmental delay [Unknown]
  - Deformity [Unknown]
  - Monoplegia [Unknown]
  - Eye movement disorder [Unknown]
  - Injury [Unknown]
  - Physical disability [Unknown]
  - Injury [Unknown]
  - Emotional distress [Unknown]
  - Mental impairment [Unknown]
  - Cognitive disorder [Unknown]
  - Abnormal behaviour [Unknown]
  - Anhedonia [Unknown]
  - Foetal exposure during pregnancy [Unknown]
  - Urinary incontinence [Unknown]
